FAERS Safety Report 22302543 (Version 2)
Quarter: 2023Q2

REPORT INFORMATION
  Report Type: Spontaneous
  Country: TW (occurrence: TW)
  Receive Date: 20230510
  Receipt Date: 20230511
  Transmission Date: 20230721
  Serious: Yes (Death, Life-Threatening, Hospitalization, Other)
  Sender: FDA-Public Use
  Company Number: None

PATIENT
  Age: 53 Year
  Sex: Female
  Weight: 47 kg

DRUGS (5)
  1. METHYLPREDNISOLONE [Suspect]
     Active Substance: METHYLPREDNISOLONE
     Indication: Immunosuppressant drug therapy
     Dosage: UNK,  UNK (REDUCE DOSE)
     Route: 048
  2. METHYLPREDNISOLONE [Suspect]
     Active Substance: METHYLPREDNISOLONE
     Dosage: 10 MG, ONCE PER DAY
     Route: 048
  3. MYCOPHENOLATE MOFETIL [Suspect]
     Active Substance: MYCOPHENOLATE MOFETIL
     Indication: Immunosuppressant drug therapy
     Dosage: 360 MG, 2 TIMES PER DAY
     Route: 048
     Dates: start: 2012
  4. EVEROLIMUS [Suspect]
     Active Substance: EVEROLIMUS
     Indication: Immunosuppressant drug therapy
     Dosage: 0.5 MG, 2 TIMES PER DAY
     Route: 048
     Dates: start: 2012
  5. CYCLOSPORINE [Suspect]
     Active Substance: CYCLOSPORINE
     Indication: Immunosuppressant drug therapy
     Dosage: 25 MG, 2 TIMES PER DAY
     Route: 048
     Dates: start: 2012

REACTIONS (12)
  - Cardiac tamponade [Fatal]
  - Aortic intramural haematoma [Fatal]
  - Aortitis salmonella [Fatal]
  - Aortic dissection [Fatal]
  - Respiratory distress [Unknown]
  - Anaemia [Unknown]
  - Cardiomegaly [Unknown]
  - Pleural effusion [Unknown]
  - Pericardial effusion [Unknown]
  - Metabolic acidosis [Unknown]
  - Acute kidney injury [Unknown]
  - Gastroenteritis salmonella [Unknown]

NARRATIVE: CASE EVENT DATE: 20200101
